FAERS Safety Report 24108412 (Version 1)
Quarter: 2024Q3

REPORT INFORMATION
  Report Type: Report from Study
  Country: US (occurrence: US)
  Receive Date: 20240718
  Receipt Date: 20240718
  Transmission Date: 20241016
  Serious: Yes (Hospitalization, Other)
  Sender: ROCHE
  Company Number: US-ROCHE-10000025133

PATIENT
  Age: 54 Year
  Sex: Female
  Weight: 59.87 kg

DRUGS (5)
  1. OCREVUS [Suspect]
     Active Substance: OCRELIZUMAB
     Indication: Secondary progressive multiple sclerosis
     Route: 065
  2. BACLOFEN [Concomitant]
     Active Substance: BACLOFEN
     Route: 048
  3. NALTREXONE [Concomitant]
     Active Substance: NALTREXONE
     Indication: Multiple sclerosis
  4. VITAMINS [Concomitant]
     Active Substance: VITAMINS
  5. MINERALS [Concomitant]
     Active Substance: MINERALS

REACTIONS (6)
  - COVID-19 [Unknown]
  - Cough [Recovering/Resolving]
  - Lower respiratory tract congestion [Unknown]
  - Muscular weakness [Not Recovered/Not Resolved]
  - Cerebral atrophy [Unknown]
  - Therapeutic response decreased [Not Recovered/Not Resolved]

NARRATIVE: CASE EVENT DATE: 20210901
